FAERS Safety Report 8234366-1 (Version None)
Quarter: 2012Q1

REPORT INFORMATION
  Report Type: 
  Country: None (occurrence: None)
  Receive Date: 20120326
  Receipt Date: 20120314
  Transmission Date: 20120608
  Serious: Yes (Hospitalization)
  Sender: FDA-Public Use
  Company Number: CH-TEVA-329225ISR

PATIENT
  Age: 23 Year
  Sex: Female
  Weight: 47 kg

DRUGS (10)
  1. TORSEMIDE [Concomitant]
  2. MORPHINE [Concomitant]
  3. IFOSFAMIDE [Suspect]
     Indication: NEOPLASM MALIGNANT
     Dosage: 5500 MG/M2;
     Route: 042
     Dates: start: 20120301, end: 20120302
  4. PANTOPRAZOLE [Concomitant]
  5. ACETAMINOPHEN [Concomitant]
  6. PASPERTIN [Concomitant]
  7. ZOFRAN [Concomitant]
  8. CARBOPLATIN [Suspect]
     Indication: NEOPLASM MALIGNANT
     Route: 042
     Dates: start: 20120301, end: 20120302
  9. ETOPOPHOS PRESERVATIVE FREE [Suspect]
     Indication: NEOPLASM MALIGNANT
     Dosage: 100 MG/M2;
     Route: 042
     Dates: start: 20120301, end: 20120302
  10. DURAGESIC-100 [Concomitant]

REACTIONS (3)
  - ENCEPHALOPATHY [None]
  - CONVULSION [None]
  - NEUTROPENIA [None]
